FAERS Safety Report 19215616 (Version 6)
Quarter: 2022Q2

REPORT INFORMATION
  Report Type: Spontaneous
  Country: IT (occurrence: IT)
  Receive Date: 20210505
  Receipt Date: 20220518
  Transmission Date: 20220720
  Serious: Yes (Death, Hospitalization, Other)
  Sender: FDA-Public Use
  Company Number: IT-ALXN-A202105149

PATIENT
  Age: 41 Year
  Sex: Female
  Weight: 45 kg

DRUGS (3)
  1. SOLIRIS [Suspect]
     Active Substance: ECULIZUMAB
     Indication: Atypical haemolytic uraemic syndrome
     Dosage: 900 MG, QW
     Route: 042
     Dates: start: 20210415
  2. AMLODIPINE [Concomitant]
     Active Substance: AMLODIPINE BESYLATE
     Indication: Product used for unknown indication
     Dosage: UNK
     Route: 065
  3. GANCICLOVIR [Concomitant]
     Active Substance: GANCICLOVIR
     Indication: Product used for unknown indication
     Dosage: 150 MG, UNK
     Route: 042
     Dates: start: 20210214, end: 20210429

REACTIONS (9)
  - Cardiac failure [Fatal]
  - Cardiac arrest [Fatal]
  - Pulmonary hypertension [Fatal]
  - Acute kidney injury [Unknown]
  - Neutrophilia [Unknown]
  - Generalised oedema [Unknown]
  - Leukocytosis [Unknown]
  - Cerebral haemorrhage [Unknown]
  - Anaemia [Unknown]

NARRATIVE: CASE EVENT DATE: 20210429
